FAERS Safety Report 25937075 (Version 1)
Quarter: 2025Q4

REPORT INFORMATION
  Report Type: Spontaneous
  Country: JP (occurrence: JP)
  Receive Date: 20251017
  Receipt Date: 20251017
  Transmission Date: 20260117
  Serious: Yes (Death, Other)
  Sender: AMGEN
  Company Number: JP-AMGEN-JPNSP2025204271

PATIENT
  Age: 78 Year
  Sex: Male

DRUGS (4)
  1. BEVACIZUMAB [Suspect]
     Active Substance: BEVACIZUMAB
     Indication: Hepatocellular carcinoma
     Dosage: 800 MILLIGRAM, QD
     Route: 040
  2. ASPIRIN [Concomitant]
     Active Substance: ASPIRIN
     Dosage: 100 MILLIGRAM
  3. PRASUGREL [Concomitant]
     Active Substance: PRASUGREL
     Dosage: 3.75 MILLIGRAM, QD
  4. ATEZOLIZUMAB [Concomitant]
     Active Substance: ATEZOLIZUMAB
     Indication: Hepatocellular carcinoma
     Dosage: 1200 MILLIGRAM, QD
     Route: 040

REACTIONS (4)
  - Cardio-respiratory arrest [Fatal]
  - Vascular stent thrombosis [Unknown]
  - Myocardial infarction [Unknown]
  - Off label use [Unknown]
